FAERS Safety Report 5272634-6 (Version None)
Quarter: 2007Q1

REPORT INFORMATION
  Report Type: 
  Country: None (occurrence: None)
  Receive Date: 20070320
  Receipt Date: 20070320
  Transmission Date: 20070707
  Serious: No
  Sender: FDA-Public Use
  Company Number: None

PATIENT
  Age: 36 Year
  Sex: Female
  Weight: 115.6672 kg

DRUGS (1)
  1. LUPRON DEPOT [Suspect]
     Indication: ENDOMETRIOSIS
     Dosage: ONE INJECTIONS MONTHLY SQ
     Route: 058
     Dates: start: 20051110, end: 20060110

REACTIONS (40)
  - ABDOMINAL PAIN [None]
  - ABDOMINAL PAIN LOWER [None]
  - APHONIA [None]
  - ARTHRALGIA [None]
  - BACK PAIN [None]
  - BLEPHAROSPASM [None]
  - DARK CIRCLES UNDER EYES [None]
  - DEEP VEIN THROMBOSIS [None]
  - DIZZINESS [None]
  - DYSPNOEA [None]
  - DYSPNOEA EXERTIONAL [None]
  - DYSURIA [None]
  - EAR PAIN [None]
  - ENDOMETRIOSIS [None]
  - ERYTHEMA [None]
  - EYE PAIN [None]
  - FATIGUE [None]
  - FEELING HOT AND COLD [None]
  - INFLAMMATION [None]
  - MEMORY IMPAIRMENT [None]
  - MIGRAINE [None]
  - MUSCLE SPASMS [None]
  - MUSCLE TWITCHING [None]
  - MYALGIA [None]
  - NAIL DISCOLOURATION [None]
  - NECK PAIN [None]
  - OEDEMA PERIPHERAL [None]
  - PAIN IN JAW [None]
  - PALLOR [None]
  - PARAESTHESIA [None]
  - PERIPHERAL COLDNESS [None]
  - STOMATITIS [None]
  - TEMPERATURE INTOLERANCE [None]
  - THROAT IRRITATION [None]
  - THROMBOPHLEBITIS [None]
  - TREMOR [None]
  - URINARY INCONTINENCE [None]
  - URINARY TRACT DISORDER [None]
  - VISION BLURRED [None]
  - WEIGHT INCREASED [None]
